FAERS Safety Report 13724570 (Version 1)
Quarter: 2017Q3

REPORT INFORMATION
  Report Type: Spontaneous
  Country: DK (occurrence: DK)
  Receive Date: 20170706
  Receipt Date: 20170706
  Transmission Date: 20171127
  Serious: Yes (Hospitalization)
  Sender: FDA-Public Use
  Company Number: DK-FRESENIUS KABI-FK201705774

PATIENT
  Age: 4 Month
  Sex: Male

DRUGS (2)
  1. BUPIVACAINE (MANUFACTURER UNKNOWN) [Suspect]
     Active Substance: BUPIVACAINE
     Indication: LOCAL ANAESTHESIA
     Route: 058
  2. MEPIVACAINE INJECTION (MANUFACTURER UNKNOWN) [Suspect]
     Active Substance: MEPIVACAINE HYDROCHLORIDE
     Indication: LOCAL ANAESTHESIA
     Route: 058

REACTIONS (6)
  - Incorrect dose administered [Unknown]
  - Respiratory failure [Unknown]
  - Drug administered to patient of inappropriate age [Unknown]
  - Seizure [Recovered/Resolved]
  - Pneumonia aspiration [Unknown]
  - Toxicity to various agents [Recovered/Resolved]
